FAERS Safety Report 8962320 (Version 1)
Quarter: 2012Q4

REPORT INFORMATION
  Report Type: Spontaneous
  Country: SE (occurrence: None)
  Receive Date: 20121203
  Receipt Date: 20121203
  Transmission Date: 20130627
  Serious: Yes (Other)
  Sender: FDA-Public Use
  Company Number: DSA_55090_2012

PATIENT
  Age: 55 Year
  Sex: Male

DRUGS (2)
  1. FLAGYL [Suspect]
     Indication: CHOLECYSTITIS
     Route: 048
     Dates: start: 20111227, end: 20111228
  2. CIPROFLOXACIN [Suspect]
     Indication: CHOLECYSTITIS
     Route: 048
     Dates: start: 20111227, end: 20111229

REACTIONS (3)
  - Angioedema [None]
  - Paraesthesia [None]
  - Hypersensitivity [None]
